FAERS Safety Report 26040864 (Version 2)
Quarter: 2025Q4

REPORT INFORMATION
  Report Type: Spontaneous
  Country: US (occurrence: US)
  Receive Date: 20251113
  Receipt Date: 20251210
  Transmission Date: 20260118
  Serious: No
  Sender: PFIZER
  Company Number: US-PFIZER INC-PV202300088834

PATIENT
  Age: 66 Year
  Sex: Female
  Weight: 71.21 kg

DRUGS (3)
  1. ESTRING [Suspect]
     Active Substance: ESTRADIOL
     Indication: Menopausal symptoms
     Dosage: 2 MG, EVERY 3 MONTHS
  2. ESTRING [Suspect]
     Active Substance: ESTRADIOL
     Indication: Pruritus
  3. ESTRING [Suspect]
     Active Substance: ESTRADIOL
     Indication: Vulvovaginal dryness

REACTIONS (1)
  - Device use issue [Unknown]
